FAERS Safety Report 4300137-1 (Version None)
Quarter: 2004Q1

REPORT INFORMATION
  Report Type: 
  Country: None (occurrence: None)
  Receive Date: 20040218
  Receipt Date: 20040206
  Transmission Date: 20041129
  Serious: Yes (Hospitalization, Other)
  Sender: FDA-Public Use
  Company Number: HQWYE850306FEB04

PATIENT
  Age: 46 Year
  Sex: Male

DRUGS (4)
  1. INIPOMP (PANTOPRAZOLE, TABLET, DELAYED RELEASE) [Suspect]
     Dosage: 20 MG 1X PER 1 DAY ORAL
     Route: 048
     Dates: start: 20030315, end: 20031204
  2. ALLOPURINOL [Suspect]
     Indication: GOUT
     Dosage: 1 TIME (S) PER DAY 1 PIECE
     Dates: start: 20030315, end: 20031204
  3. FOSAMAX [Suspect]
     Indication: OSTEOPOROSIS
     Dosage: 70 MG 1D PER 1 WK ORAL
     Route: 048
     Dates: start: 20030315, end: 20031204
  4. SULFASALAZINE [Suspect]
     Indication: RHEUMATOID ARTHRITIS
     Dosage: 2 G 1X PER 1 DAY ORAL
     Route: 048
     Dates: start: 20031013, end: 20031204

REACTIONS (1)
  - AGRANULOCYTOSIS [None]
